FAERS Safety Report 23259735 (Version 2)
Quarter: 2024Q1

REPORT INFORMATION
  Report Type: Spontaneous
  Country: DE (occurrence: DE)
  Receive Date: 20231204
  Receipt Date: 20240203
  Transmission Date: 20240409
  Serious: Yes (Life-Threatening, Other)
  Sender: FDA-Public Use
  Company Number: DE-ABBVIE-5519600

PATIENT
  Age: 55 Year
  Sex: Female
  Weight: 68 kg

DRUGS (10)
  1. RINVOQ [Suspect]
     Active Substance: UPADACITINIB
     Indication: Rheumatoid arthritis
     Dosage: STRENGTH: 15 MG
     Route: 048
     Dates: start: 202005, end: 202206
  2. VITAMIN D [Concomitant]
     Active Substance: VITAMIN D NOS
     Indication: Product used for unknown indication
  3. PREDNISOLONE [Concomitant]
     Active Substance: PREDNISOLONE
     Indication: Rheumatoid arthritis
  4. PREDNISOLONE [Concomitant]
     Active Substance: PREDNISOLONE
     Indication: Rheumatoid arthritis
     Dates: start: 2008
  5. PREDNISOLONE [Concomitant]
     Active Substance: PREDNISOLONE
     Indication: Rheumatoid arthritis
     Dosage: 5-12
  6. TOCILIZUMAB [Concomitant]
     Active Substance: TOCILIZUMAB
     Indication: Rheumatoid arthritis
     Dates: start: 201703, end: 201706
  7. METHOTREXATE [Concomitant]
     Active Substance: METHOTREXATE
     Indication: Rheumatoid arthritis
  8. LEFLUNOMIDE [Concomitant]
     Active Substance: LEFLUNOMIDE
     Indication: Rheumatoid arthritis
  9. ENBREL [Concomitant]
     Active Substance: ETANERCEPT
     Indication: Rheumatoid arthritis
  10. TOCILIZUMAB [Concomitant]
     Active Substance: TOCILIZUMAB
     Indication: Rheumatoid arthritis
     Dates: start: 201612

REACTIONS (18)
  - Breast cancer [Recovered/Resolved]
  - Weight increased [Recovering/Resolving]
  - Gamma-glutamyltransferase increased [Unknown]
  - Migraine [Recovered/Resolved]
  - Transaminases increased [Unknown]
  - Sleep terror [Recovered/Resolved]
  - Oedema peripheral [Recovering/Resolving]
  - Drug ineffective [Unknown]
  - Fear of injection [Unknown]
  - Dysphagia [Unknown]
  - Dyspnoea [Unknown]
  - Arthralgia [Unknown]
  - Visual impairment [Unknown]
  - Skin disorder [Unknown]
  - Arthralgia [Unknown]
  - Pancytopenia [Unknown]
  - Weight increased [Unknown]
  - Rheumatoid arthritis [Unknown]

NARRATIVE: CASE EVENT DATE: 20200501
